FAERS Safety Report 6022846-9 (Version None)
Quarter: 2008Q4

REPORT INFORMATION
  Report Type: 
  Country: None (occurrence: None)
  Receive Date: 20081230
  Receipt Date: 20080303
  Transmission Date: 20090506
  Serious: No
  Sender: FDA-Public Use
  Company Number: US-ABBOTT-08P-163-0440869-00

PATIENT
  Sex: Female
  Weight: 49.032 kg

DRUGS (1)
  1. OMNICEF [Suspect]
     Indication: UPPER RESPIRATORY TRACT INFECTION
     Route: 048
     Dates: start: 20080102, end: 20080113

REACTIONS (2)
  - EAR DISCOMFORT [None]
  - TINNITUS [None]
